FAERS Safety Report 11534759 (Version 1)
Quarter: 2015Q3

REPORT INFORMATION
  Report Type: Spontaneous
  Country: US (occurrence: US)
  Receive Date: 20150903
  Receipt Date: 20150903
  Transmission Date: 20151125
  Serious: No
  Sender: FDA-Public Use
  Company Number: US-ELI_LILLY_AND_COMPANY-US201101005321

PATIENT
  Sex: Female

DRUGS (3)
  1. HUMALOG [Suspect]
     Active Substance: INSULIN LISPRO
     Indication: TYPE 1 DIABETES MELLITUS
     Dosage: UNK, OTHER
     Dates: start: 20101130
  2. SINGULAIR [Concomitant]
     Active Substance: MONTELUKAST SODIUM
  3. LANTUS [Concomitant]
     Active Substance: INSULIN GLARGINE

REACTIONS (4)
  - Blood glucose decreased [Unknown]
  - Drug ineffective [Unknown]
  - Blood glucose increased [Unknown]
  - Migraine [Unknown]

NARRATIVE: CASE EVENT DATE: 20110112
